FAERS Safety Report 5576528-8 (Version None)
Quarter: 2007Q4

REPORT INFORMATION
  Report Type: 
  Country: None (occurrence: None)
  Receive Date: 20071228
  Receipt Date: 20071221
  Transmission Date: 20080405
  Serious: Yes (Other)
  Sender: FDA-Public Use
  Company Number: B0497768A

PATIENT
  Age: 24 Year
  Sex: Female
  Weight: 52 kg

DRUGS (4)
  1. PAXIL [Suspect]
     Indication: DEPRESSION
     Route: 048
     Dates: start: 20071120
  2. RIVOTRIL [Concomitant]
     Indication: ANXIETY DISORDER
     Dosage: 1.5MG PER DAY
     Route: 048
     Dates: start: 20071120
  3. MYSLEE [Concomitant]
     Indication: SLEEP DISORDER
     Dosage: 5MG PER DAY
     Route: 048
     Dates: start: 20071112, end: 20071127
  4. LUVOX [Concomitant]
     Route: 065

REACTIONS (3)
  - HAEMORRHAGE [None]
  - INTENTIONAL SELF-INJURY [None]
  - SUICIDE ATTEMPT [None]
